FAERS Safety Report 6331317-1 (Version None)
Quarter: 2009Q3

REPORT INFORMATION
  Report Type: 
  Country: None (occurrence: None)
  Receive Date: 20090825
  Receipt Date: 20090818
  Transmission Date: 20100115
  Serious: Yes (Death)
  Sender: FDA-Public Use
  Company Number: US-BRACCO-003312

PATIENT
  Sex: Male
  Weight: 89 kg

DRUGS (3)
  1. MULTIHANCE [Suspect]
     Indication: NUCLEAR MAGNETIC RESONANCE IMAGING
     Route: 042
     Dates: start: 20090813, end: 20090813
  2. MULTIHANCE [Suspect]
     Indication: BACK PAIN
     Route: 042
     Dates: start: 20090813, end: 20090813
  3. EPINEPHRINE [Concomitant]
     Route: 065
     Dates: start: 20090813, end: 20090813

REACTIONS (1)
  - ANAPHYLACTIC REACTION [None]
